FAERS Safety Report 9760058 (Version 1)
Quarter: 2013Q4

REPORT INFORMATION
  Report Type: Spontaneous
  Country: FR (occurrence: FR)
  Receive Date: 20131216
  Receipt Date: 20131216
  Transmission Date: 20140711
  Serious: Yes (Other)
  Sender: FDA-Public Use
  Company Number: FR-JNJFOC-20131206314

PATIENT
  Age: 26 Year
  Sex: Female

DRUGS (5)
  1. REMICADE [Suspect]
     Indication: ANKYLOSING SPONDYLITIS
     Route: 042
     Dates: start: 20130930
  2. REMICADE [Suspect]
     Indication: ANKYLOSING SPONDYLITIS
     Route: 042
     Dates: start: 20130909
  3. REMICADE [Suspect]
     Indication: ANKYLOSING SPONDYLITIS
     Dosage: 14 INFUSIONS
     Route: 042
     Dates: start: 201104, end: 201306
  4. DAFALGAN CODEINE [Concomitant]
     Indication: PAIN
     Route: 065
  5. MINIDRIL [Concomitant]
     Route: 065

REACTIONS (1)
  - Paraesthesia [Recovered/Resolved]
